FAERS Safety Report 17571374 (Version 1)
Quarter: 2020Q1

REPORT INFORMATION
  Report Type: Spontaneous
  Country: US (occurrence: US)
  Receive Date: 20200323
  Receipt Date: 20200323
  Transmission Date: 20200409
  Serious: Yes (Hospitalization)
  Sender: FDA-Public Use
  Company Number: US-PARATEK PHARMACEUTICALS, INC.-2020PTK00037

PATIENT
  Age: 59 Year
  Sex: Male

DRUGS (3)
  1. NUZYRA [Suspect]
     Active Substance: OMADACYCLINE
     Indication: SEPSIS
  2. NUZYRA [Suspect]
     Active Substance: OMADACYCLINE
     Indication: PERITONEAL ABSCESS
     Dosage: 100 MG, 1X/DAY
     Route: 042
     Dates: start: 20200227
  3. MYCAMINE [Concomitant]
     Active Substance: MICAFUNGIN SODIUM
     Dosage: 100 MG, 1X/DAY
     Route: 042

REACTIONS (3)
  - Pulmonary embolism [Unknown]
  - Off label use [Unknown]
  - Drug dose titration not performed [Unknown]

NARRATIVE: CASE EVENT DATE: 2020
